FAERS Safety Report 5216298-6 (Version None)
Quarter: 2006Q4

REPORT INFORMATION
  Report Type: 
  Country: None (occurrence: None)
  Receive Date: 20061122
  Receipt Date: 20060824
  Transmission Date: 20070319
  Serious: Yes (Disabling, Other)
  Sender: FDA-Public Use
  Company Number: 2006102870

PATIENT
  Age: 73 Year
  Sex: Male
  Weight: 103.4201 kg

DRUGS (4)
  1. LIPITOR [Suspect]
     Indication: BLOOD CHOLESTEROL INCREASED
     Dosage: 10 MG (10 MG, 1 IN 1 D)
  2. ATENOLOL [Concomitant]
  3. WARFARIN SODIUM [Concomitant]
  4. VALSARTAN [Concomitant]

REACTIONS (1)
  - MUSCULAR WEAKNESS [None]
